FAERS Safety Report 24621643 (Version 2)
Quarter: 2024Q4

REPORT INFORMATION
  Report Type: Spontaneous
  Country: US (occurrence: US)
  Receive Date: 20241114
  Receipt Date: 20241126
  Transmission Date: 20250115
  Serious: No
  Sender: SANOFI AVENTIS
  Company Number: US-SA-2024SA325111

PATIENT
  Age: 69 Year

DRUGS (3)
  1. TOUJEO [Suspect]
     Active Substance: INSULIN GLARGINE
     Indication: Type 2 diabetes mellitus
     Dosage: 150 IU, BID
     Route: 058
  2. TOUJEO [Suspect]
     Active Substance: INSULIN GLARGINE
     Indication: Diabetic retinopathy
  3. TOUJEO [Suspect]
     Active Substance: INSULIN GLARGINE
     Indication: Blood glucagon increased

REACTIONS (1)
  - Off label use [Unknown]
